FAERS Safety Report 24684035 (Version 1)
Quarter: 2024Q4

REPORT INFORMATION
  Report Type: Spontaneous
  Country: US (occurrence: US)
  Receive Date: 20241202
  Receipt Date: 20241202
  Transmission Date: 20250114
  Serious: No
  Sender: DR REDDYS
  Company Number: US-DRL-USA-LIT/USA/24/0017540

PATIENT
  Age: 46 Year
  Sex: Male

DRUGS (1)
  1. FINASTERIDE [Suspect]
     Active Substance: FINASTERIDE
     Indication: Priapism

REACTIONS (1)
  - Drug ineffective for unapproved indication [Unknown]
